FAERS Safety Report 9668621 (Version 3)
Quarter: 2014Q1

REPORT INFORMATION
  Report Type: Spontaneous
  Country: AR (occurrence: AR)
  Receive Date: 20131105
  Receipt Date: 20140228
  Transmission Date: 20141002
  Serious: Yes (Other)
  Sender: FDA-Public Use
  Company Number: AR-AMGEN-ARGSP2013077218

PATIENT
  Age: 67 Year
  Sex: Female

DRUGS (3)
  1. ENBREL [Suspect]
     Indication: RHEUMATOID ARTHRITIS
     Dosage: 50 MG, WEEKLY
     Route: 065
     Dates: start: 20090115
  2. ATENOLOL [Concomitant]
     Dosage: 25 MG, 1X/DAY
  3. HYDROXYCHLOROQUINE [Concomitant]
     Dosage: UNK UNK, QD

REACTIONS (1)
  - Diverticulitis [Recovered/Resolved]
